FAERS Safety Report 12354143 (Version 1)
Quarter: 2016Q2

REPORT INFORMATION
  Report Type: Spontaneous
  Country: ES (occurrence: ES)
  Receive Date: 20160511
  Receipt Date: 20160511
  Transmission Date: 20160815
  Serious: Yes (Other)
  Sender: FDA-Public Use
  Company Number: ES-PFIZER INC-2016239383

PATIENT
  Age: 76 Year
  Sex: Female

DRUGS (4)
  1. CRIZOTINIB [Suspect]
     Active Substance: CRIZOTINIB
     Indication: LUNG ADENOCARCINOMA STAGE IV
     Dosage: 250 MG, 2X/DAY
     Route: 048
     Dates: start: 201407, end: 20150507
  2. CRIZOTINIB [Suspect]
     Active Substance: CRIZOTINIB
     Dosage: 200 MG, 2X/DAY
     Route: 048
     Dates: start: 20150603
  3. CRIZOTINIB [Suspect]
     Active Substance: CRIZOTINIB
     Dosage: 250 MG, 1X/DAY
     Route: 048
     Dates: start: 20150610, end: 201510
  4. CRIZOTINIB [Suspect]
     Active Substance: CRIZOTINIB
     Dosage: 250 MG, 2X/DAY
     Route: 048
     Dates: start: 20150514, end: 20150521

REACTIONS (12)
  - Disease progression [Unknown]
  - Renal failure [Unknown]
  - Abdominal pain upper [Unknown]
  - Anaemia [Unknown]
  - Lung adenocarcinoma stage IV [Unknown]
  - Rash [Unknown]
  - Oedema peripheral [Unknown]
  - Diarrhoea [Unknown]
  - Visual impairment [Unknown]
  - Hypertransaminasaemia [Unknown]
  - Pulmonary embolism [Unknown]
  - Hyponatraemia [Unknown]

NARRATIVE: CASE EVENT DATE: 201407
